FAERS Safety Report 8099244-X (Version None)
Quarter: 2012Q1

REPORT INFORMATION
  Report Type: 
  Country: None (occurrence: None)
  Receive Date: 20120129
  Receipt Date: 20111030
  Transmission Date: 20120608
  Serious: No
  Sender: FDA-Public Use
  Company Number: US-ABBOTT-11P-163-0861341-00

PATIENT
  Sex: Male

DRUGS (17)
  1. METHOTREXATE [Concomitant]
     Indication: RHEUMATOID ARTHRITIS
  2. AMITRIPTYLINE HCL [Concomitant]
     Indication: INSOMNIA
  3. AMITRIPTYLINE HCL [Concomitant]
     Indication: DEPRESSION
  4. AMITRIPTYLINE HCL [Concomitant]
     Indication: TENDONITIS
  5. PROTONIX [Concomitant]
     Indication: DYSPEPSIA
  6. LIPITOR [Concomitant]
     Indication: BLOOD CHOLESTEROL INCREASED
  7. PHENTANYL [Concomitant]
     Indication: BACK PAIN
     Dosage: PATCH CHANGE Q 72 HOURS
  8. PREDNISONE TAB [Concomitant]
     Indication: INFLAMMATION
  9. PREDNISONE TAB [Concomitant]
     Indication: JOINT SWELLING
  10. XANAX [Concomitant]
     Indication: ANXIETY
  11. TAMSULOSIN HCL [Concomitant]
     Indication: PROSTATOMEGALY
  12. MULTI-VITAMIN [Concomitant]
     Indication: VITAMIN SUPPLEMENTATION
     Dosage: DAILY
  13. HUMIRA [Suspect]
     Indication: RHEUMATOID ARTHRITIS
     Route: 058
     Dates: start: 20110929
  14. METHOTREXATE [Concomitant]
     Indication: INFLAMMATION
     Dosage: 4 PILLS, TWICE WEEKLY
  15. PROTONIX [Concomitant]
     Indication: GASTROOESOPHAGEAL REFLUX DISEASE
  16. CELEBREX [Concomitant]
     Indication: OSTEOARTHRITIS
  17. XANAX [Concomitant]
     Indication: INSOMNIA

REACTIONS (5)
  - MOBILITY DECREASED [None]
  - PAIN IN EXTREMITY [None]
  - JOINT SWELLING [None]
  - OEDEMA PERIPHERAL [None]
  - MUSCULOSKELETAL STIFFNESS [None]
